FAERS Safety Report 5352894-3 (Version None)
Quarter: 2007Q2

REPORT INFORMATION
  Report Type: 
  Country: None (occurrence: None)
  Receive Date: 20070518
  Receipt Date: 20070418
  Transmission Date: 20071010
  Serious: No
  Sender: FDA-Public Use
  Company Number: TPA2007A00844

PATIENT
  Age: 59 Year
  Sex: Female
  Weight: 56.6996 kg

DRUGS (5)
  1. ROZEREM [Suspect]
     Indication: INSOMNIA
     Dosage: 8 MG, HS, PER ORAL
     Route: 048
     Dates: start: 20070416, end: 20070417
  2. REQUIP [Concomitant]
  3. SIMVASTATIN [Concomitant]
  4. ESTRATEST (METHYLTESTOSTERONE, ESTROGENS ESTERFIFIED) [Concomitant]
  5. TRAZODONE HCL [Concomitant]

REACTIONS (3)
  - INITIAL INSOMNIA [None]
  - MIDDLE INSOMNIA [None]
  - SOMNOLENCE [None]
